FAERS Safety Report 9714162 (Version 1)
Quarter: 2013Q4

REPORT INFORMATION
  Report Type: Spontaneous
  Country: US (occurrence: US)
  Receive Date: 20131126
  Receipt Date: 20131126
  Transmission Date: 20140711
  Serious: No
  Sender: FDA-Public Use
  Company Number: US-GILEAD-2008-0019125

PATIENT
  Sex: Female

DRUGS (13)
  1. LETAIRIS [Suspect]
     Indication: COR PULMONALE CHRONIC
     Route: 048
     Dates: start: 20071115
  2. LYRICA [Concomitant]
  3. PERCOCET [Concomitant]
  4. DARVOCET [Concomitant]
  5. TYLENOL [Concomitant]
  6. TERBUTALINE [Concomitant]
  7. ASTELIN [Concomitant]
  8. PROTONIX [Concomitant]
  9. VITAMIN E [Concomitant]
  10. VITAMIN B12 [Concomitant]
  11. VITAMIN C [Concomitant]
  12. VITAMIN D [Concomitant]
  13. FOLIC ACID [Concomitant]

REACTIONS (4)
  - Palpitations [None]
  - Headache [None]
  - Constipation [None]
  - Nausea [None]
